FAERS Safety Report 23871736 (Version 3)
Quarter: 2025Q3

REPORT INFORMATION
  Report Type: Spontaneous
  Country: JP (occurrence: JP)
  Receive Date: 20240520
  Receipt Date: 20250708
  Transmission Date: 20251021
  Serious: Yes (Other)
  Sender: GENMAB
  Company Number: JP-GENMAB-2024-01620

PATIENT
  Age: 75 Year
  Sex: Male

DRUGS (4)
  1. EPKINLY [Suspect]
     Active Substance: EPCORITAMAB-BYSP
     Indication: Diffuse large B-cell lymphoma refractory
     Route: 065
     Dates: start: 2024
  2. PREDNISOLONE [Concomitant]
     Active Substance: PREDNISOLONE
     Indication: Premedication
     Dates: start: 2024, end: 2024
  3. PREDNISOLONE [Concomitant]
     Active Substance: PREDNISOLONE
     Dates: start: 2024
  4. ACETAMINOPHEN [Concomitant]
     Active Substance: ACETAMINOPHEN
     Indication: Premedication
     Dates: start: 2024

REACTIONS (3)
  - Fungating wound [Unknown]
  - Diffuse large B-cell lymphoma refractory [Unknown]
  - Cytokine release syndrome [Unknown]

NARRATIVE: CASE EVENT DATE: 20240101
